FAERS Safety Report 9335394 (Version 2)
Quarter: 2013Q4

REPORT INFORMATION
  Report Type: Spontaneous
  Country: US (occurrence: US)
  Receive Date: 20130605
  Receipt Date: 20131118
  Transmission Date: 20140711
  Serious: Yes (Hospitalization)
  Sender: FDA-Public Use
  Company Number: US-B.I. PHARMACEUTICALS,INC./RIDGEFIELD-2013-BI-15462BP

PATIENT
  Sex: Female
  Weight: 90.72 kg

DRUGS (16)
  1. PRADAXA [Suspect]
     Indication: ANTICOAGULANT THERAPY
     Dosage: 300 MG
     Route: 048
     Dates: start: 20120107, end: 20120113
  2. WELCHOL [Concomitant]
  3. ZETIA [Concomitant]
  4. ZOCOR [Concomitant]
  5. DUONEB [Concomitant]
  6. ALDACTONE [Concomitant]
  7. ARIMIDEX [Concomitant]
  8. ASPIRIN [Concomitant]
  9. COLACE [Concomitant]
  10. CORDARONE [Concomitant]
  11. COREG [Concomitant]
  12. FERROUS SULFATE [Concomitant]
  13. LASIX [Concomitant]
  14. PHENOBARBITAL [Concomitant]
  15. PROZAC [Concomitant]
  16. PRINIVIL [Concomitant]

REACTIONS (2)
  - Gastrointestinal haemorrhage [Unknown]
  - Anaemia [Unknown]
